FAERS Safety Report 13717305 (Version 2)
Quarter: 2017Q3

REPORT INFORMATION
  Report Type: Spontaneous
  Country: JP (occurrence: JP)
  Receive Date: 20170705
  Receipt Date: 20170706
  Transmission Date: 20171127
  Serious: Yes (Other)
  Sender: FDA-Public Use
  Company Number: JP-PFIZER INC-2017282414

PATIENT
  Age: 67 Year
  Sex: Male
  Weight: 61.5 kg

DRUGS (9)
  1. WARFARIN [Interacting]
     Active Substance: WARFARIN
     Indication: ANTICOAGULANT THERAPY
     Dosage: 3 MG, DAILY
     Route: 048
  2. ASPIRIN. [Concomitant]
     Active Substance: ASPIRIN
     Dosage: 100 MG, DAILY
  3. AMLODIPINE [Concomitant]
     Active Substance: AMLODIPINE BESYLATE
     Dosage: 2.5 MG, DAILY
  4. WARFARIN [Interacting]
     Active Substance: WARFARIN
     Dosage: 2.5 MG, DAILY
     Route: 048
  5. TELMISARTAN. [Concomitant]
     Active Substance: TELMISARTAN
     Dosage: 40 MG, DAILY
  6. WARFARIN [Interacting]
     Active Substance: WARFARIN
     Dosage: 2 MG, DAILY
     Route: 048
  7. SUNITINIB MALATE. [Suspect]
     Active Substance: SUNITINIB MALATE
     Dosage: 50 MG, DAILY
     Route: 048
  8. WARFARIN [Interacting]
     Active Substance: WARFARIN
     Dosage: 1.5 MG, DAILY
     Route: 048
  9. HEPARIN [Concomitant]
     Active Substance: HEPARIN SODIUM
     Dosage: 15000 IU, DAILY

REACTIONS (4)
  - Drug interaction [Recovered/Resolved]
  - Gastrointestinal disorder [Unknown]
  - International normalised ratio increased [Recovered/Resolved]
  - Decreased appetite [Unknown]
